FAERS Safety Report 8852329 (Version 2)
Quarter: 2012Q4

REPORT INFORMATION
  Report Type: 
  Country: US (occurrence: US)
  Receive Date: 20121022
  Receipt Date: 20121207
  Transmission Date: 20130627
  Serious: Yes (Other)
  Sender: FDA-Public Use
  Company Number: US-PFIZER INC-2012262360

PATIENT
  Age: 51 Year
  Sex: Male
  Weight: 113.38 kg

DRUGS (6)
  1. ZOLOFT [Suspect]
     Indication: BIPOLAR DISORDER
     Dosage: 100 mg, 2x/day
     Route: 048
  2. ZOLOFT [Suspect]
     Dosage: 100 mg, 2x/day
     Route: 048
     Dates: end: 20121118
  3. AMLODIPINE [Concomitant]
     Indication: HYPERTENSION
     Dosage: 5 mg, 1x/day
     Route: 048
  4. ATENOLOL [Concomitant]
     Indication: BLOOD PRESSURE HIGH
     Dosage: 50 mg, 1x/day
  5. ATORVASTATIN [Concomitant]
     Indication: HIGH CHOLESTEROL
     Dosage: 80 mg, 1x/day (HS)
     Route: 048
  6. ATORVASTATIN [Concomitant]
     Indication: MIXED HYPERLIPIDEMIA

REACTIONS (1)
  - Prostatomegaly [Unknown]
